FAERS Safety Report 6671965-2 (Version None)
Quarter: 2010Q2

REPORT INFORMATION
  Report Type: 
  Country: None (occurrence: None)
  Receive Date: 20100407
  Receipt Date: 20100324
  Transmission Date: 20101027
  Serious: Yes (Other)
  Sender: FDA-Public Use
  Company Number: GB-GENENTECH-300010

PATIENT
  Sex: Female

DRUGS (1)
  1. LUCENTIS [Suspect]
     Indication: CHOROIDAL NEOVASCULARISATION
     Dosage: 5 MG, UNK
     Route: 031
     Dates: start: 20091016

REACTIONS (4)
  - DIPLOPIA [None]
  - RETCHING [None]
  - RETINAL PIGMENT EPITHELIAL TEAR [None]
  - STRABISMUS [None]
